FAERS Safety Report 6231962-8 (Version None)
Quarter: 2009Q2

REPORT INFORMATION
  Report Type: 
  Country: None (occurrence: None)
  Receive Date: 20090616
  Receipt Date: 20080527
  Transmission Date: 20091009
  Serious: No
  Sender: FDA-Public Use
  Company Number: US-ABBOTT-08P-163-0453991-00

PATIENT
  Sex: Female
  Weight: 69.462 kg

DRUGS (4)
  1. GENGRAF CAPSULES [Suspect]
     Indication: APLASTIC ANAEMIA
     Route: 048
     Dates: start: 20080401
  2. TRAMADOL HCL [Concomitant]
     Indication: RESTLESS LEGS SYNDROME
     Route: 048
     Dates: start: 19980101
  3. OMEPRAZOLE [Concomitant]
     Indication: DYSPEPSIA
     Route: 048
     Dates: start: 19980101
  4. LEVOTHYROXINE SODIUM [Concomitant]
     Indication: THYROID DISORDER
     Route: 048
     Dates: start: 19980101

REACTIONS (1)
  - ABDOMINAL DISTENSION [None]
